FAERS Safety Report 10081046 (Version 1)
Quarter: 2014Q2

REPORT INFORMATION
  Report Type: Spontaneous
  Country: US (occurrence: None)
  Receive Date: 20140414
  Receipt Date: 20140414
  Transmission Date: 20141212
  Serious: Yes (Disabling)
  Sender: FDA-Public Use
  Company Number: 2014-US-001933

PATIENT
  Age: 25 Year
  Sex: Female
  Weight: 72.6 kg

DRUGS (8)
  1. XYREM [Suspect]
     Indication: CHRONIC FATIGUE SYNDROME
     Route: 048
     Dates: start: 20140209, end: 201402
  2. LAMICTAL(LAMOTRIGINE) [Concomitant]
  3. CYMBALTA [Concomitant]
  4. VYANSE(LISDEXAMFETAMINE MESILATE) [Concomitant]
  5. LEVOTHYROXINE SODIUM (LEVOTHYROXINE SODIUM) [Concomitant]
  6. FENTANYL(FENTANYL CITRATE) [Concomitant]
  7. DILAUDID (HYDROMORPHONE HYDROCHLORIDE) [Concomitant]
  8. LEVOTHYROXINE [Concomitant]

REACTIONS (13)
  - Disability [None]
  - Palpitations [None]
  - Insomnia [None]
  - Trance [None]
  - Dizziness [None]
  - Nausea [None]
  - Decreased appetite [None]
  - Anxiety [None]
  - Hallucination, auditory [None]
  - Insomnia [None]
  - Pain [None]
  - Headache [None]
  - Off label use [None]
